FAERS Safety Report 5035219-2 (Version None)
Quarter: 2006Q2

REPORT INFORMATION
  Report Type: 
  Country: None (occurrence: None)
  Receive Date: 20060627
  Receipt Date: 20050125
  Transmission Date: 20061013
  Serious: Yes (Other)
  Sender: FDA-Public Use
  Company Number: PHHO2005GB03990

PATIENT
  Age: 34 Year
  Sex: Male

DRUGS (1)
  1. STI 571 VS IFN-ALPHA + CYTARABINE [Suspect]
     Indication: CHRONIC MYELOID LEUKAEMIA
     Dosage: 400 MG, QD
     Route: 048
     Dates: start: 20000705

REACTIONS (4)
  - DEMYELINATION [None]
  - FACIAL PALSY [None]
  - MULTIPLE SCLEROSIS [None]
  - VISUAL ACUITY REDUCED [None]
